FAERS Safety Report 14687043 (Version 8)
Quarter: 2018Q3

REPORT INFORMATION
  Report Type: Report from Study
  Country: None (occurrence: BE)
  Receive Date: 20180327
  Receipt Date: 20180730
  Transmission Date: 20181010
  Serious: Yes (Death, Hospitalization, Other)
  Sender: FDA-Public Use
  Company Number: BE-ABBVIE-18K-013-2298096-00

PATIENT
  Age: 72 Year
  Sex: Male
  Weight: 89 kg

DRUGS (10)
  1. CRESTOR [Concomitant]
     Active Substance: ROSUVASTATIN CALCIUM
     Indication: PRODUCT USED FOR UNKNOWN INDICATION
  2. PROLOPA 250 [Concomitant]
     Indication: PARKINSON^S DISEASE
     Dosage: FORM STRENGTH: 200MG/50MG; ??UNIT DOSE: 0.25 TABLET
     Route: 048
  3. DUODOPA [Suspect]
     Active Substance: CARBIDOPA\LEVODOPA
     Dosage: MD=2.2ML?CD=2.2ML/HR DURING 16HRS ?ED=0.3ML?ND=0.6ML/HR DURING 8HRS
     Route: 050
     Dates: start: 20171003
  4. RIVOTRIL [Concomitant]
     Active Substance: CLONAZEPAM
     Indication: PRODUCT USED FOR UNKNOWN INDICATION
  5. DUODOPA [Suspect]
     Active Substance: CARBIDOPA\LEVODOPA
     Indication: PARKINSON^S DISEASE
     Dosage: MD=4ML?CD=1.3ML/HR DURING 16HRS ?ED=1.5ML
     Route: 050
     Dates: start: 20160808, end: 20160809
  6. PROLOPA 250 [Concomitant]
     Dosage: FORM STRENGTH: 200MG/50MG; FREQUENCY TEXT: 4 TIME/DAY AS RESCUE MEDICATION
  7. AMANTAN [Concomitant]
     Indication: PRODUCT USED FOR UNKNOWN INDICATION
     Dates: start: 20160909
  8. PANTOPRAZOL [Concomitant]
     Active Substance: PANTOPRAZOLE SODIUM
     Indication: PRODUCT USED FOR UNKNOWN INDICATION
  9. DAFLON [Concomitant]
     Indication: PRODUCT USED FOR UNKNOWN INDICATION
  10. DUODOPA [Suspect]
     Active Substance: CARBIDOPA\LEVODOPA
     Dosage: DOSES CONTINUOUSLY MONITORED AND ADAPTED
     Route: 050
     Dates: start: 20160809, end: 20171003

REACTIONS (12)
  - Pneumonia [Recovering/Resolving]
  - Complication associated with device [Unknown]
  - Cognitive disorder [Unknown]
  - General physical health deterioration [Unknown]
  - Stoma site discharge [Unknown]
  - Speech disorder [Unknown]
  - Death [Fatal]
  - Hospitalisation [Unknown]
  - Dysphagia [Not Recovered/Not Resolved]
  - Dysuria [Unknown]
  - Enteral nutrition [Unknown]
  - Gastrostomy [Unknown]

NARRATIVE: CASE EVENT DATE: 2018
